FAERS Safety Report 16720404 (Version 1)
Quarter: 2019Q3

REPORT INFORMATION
  Report Type: Spontaneous
  Country: US (occurrence: US)
  Receive Date: 20190819
  Receipt Date: 20190819
  Transmission Date: 20191005
  Serious: No
  Sender: FDA-Public Use
  Company Number: None

PATIENT
  Age: 38 Year
  Sex: Male
  Weight: 97.65 kg

DRUGS (2)
  1. MELOXICAM (GENERIC FOR MOBIC) [Suspect]
     Active Substance: MELOXICAM
     Indication: ARTHRALGIA
     Dosage: ?          QUANTITY:1 TABLET(S);?
     Route: 048
     Dates: start: 20180815, end: 20181215
  2. MELOXICAM (GENERIC FOR MOBIC) [Suspect]
     Active Substance: MELOXICAM
     Indication: ABDOMINAL PAIN
     Dosage: ?          QUANTITY:1 TABLET(S);?
     Route: 048
     Dates: start: 20180815, end: 20181215

REACTIONS (4)
  - Malaise [None]
  - Gastrointestinal haemorrhage [None]
  - Visual impairment [None]
  - Abdominal discomfort [None]

NARRATIVE: CASE EVENT DATE: 20180815
